FAERS Safety Report 10653924 (Version 1)
Quarter: 2014Q4

REPORT INFORMATION
  Report Type: Spontaneous
  Country: US (occurrence: None)
  Receive Date: 20141215
  Receipt Date: 20141215
  Transmission Date: 20150529
  Serious: Yes (Death)
  Sender: FDA-Public Use
  Company Number: None

PATIENT
  Age: 79 Year
  Sex: Male
  Weight: 92.4 kg

DRUGS (9)
  1. BUDESONIDE. [Concomitant]
     Active Substance: BUDESONIDE
  2. ELIQUIS [Suspect]
     Active Substance: APIXABAN
     Indication: PULMONARY EMBOLISM
     Route: 048
     Dates: start: 20141124, end: 20141202
  3. AMIODARONE [Concomitant]
     Active Substance: AMIODARONE
  4. PANTOPRAZOLE [Concomitant]
     Active Substance: PANTOPRAZOLE SODIUM
  5. ATORVASTATIN [Concomitant]
     Active Substance: ATORVASTATIN
  6. CARVEDILOL. [Concomitant]
     Active Substance: CARVEDILOL
  7. ALBUTEROL. [Concomitant]
     Active Substance: ALBUTEROL
  8. DAPTOMYCIN. [Concomitant]
     Active Substance: DAPTOMYCIN
  9. SENOKOT [Concomitant]
     Active Substance: SENNOSIDES

REACTIONS (2)
  - Cerebrovascular accident [None]
  - Brain herniation [None]

NARRATIVE: CASE EVENT DATE: 20141203
